FAERS Safety Report 5897792-1 (Version None)
Quarter: 2008Q3

REPORT INFORMATION
  Report Type: 
  Country: None (occurrence: None)
  Receive Date: 20080924
  Receipt Date: 20080924
  Transmission Date: 20090109
  Serious: Yes (Other)
  Sender: FDA-Public Use
  Company Number: None

PATIENT
  Age: 7 Year
  Sex: Female
  Weight: 19.9583 kg

DRUGS (6)
  1. SINGULAIR [Suspect]
     Indication: ASTHMA
     Dosage: PRESCRIBED DOSE, NOT SURE 1 X DAY PO
     Route: 048
     Dates: start: 20041001, end: 20050701
  2. SINGULAIR [Suspect]
     Indication: MULTIPLE ALLERGIES
     Dosage: PRESCRIBED DOSE, NOT SURE 1 X DAY PO
     Route: 048
     Dates: start: 20041001, end: 20050701
  3. SINGULAIR [Suspect]
     Indication: ASTHMA
     Dosage: PRESCRIBED DOSE, NOT SURE 1 X DAY PO
     Route: 048
     Dates: start: 20071001, end: 20071019
  4. SINGULAIR [Suspect]
     Indication: MULTIPLE ALLERGIES
     Dosage: PRESCRIBED DOSE, NOT SURE 1 X DAY PO
     Route: 048
     Dates: start: 20071001, end: 20071019
  5. ZYRTEC [Concomitant]
  6. NASONEX [Concomitant]

REACTIONS (8)
  - ABNORMAL BEHAVIOUR [None]
  - ANGER [None]
  - CONFUSIONAL STATE [None]
  - CRYING [None]
  - DEPRESSED MOOD [None]
  - FEAR [None]
  - FEELING ABNORMAL [None]
  - MOOD SWINGS [None]
